FAERS Safety Report 5322299-X (Version None)
Quarter: 2007Q2

REPORT INFORMATION
  Report Type: 
  Country: None (occurrence: None)
  Receive Date: 20070511
  Receipt Date: 20070504
  Transmission Date: 20071010
  Serious: Yes (Hospitalization)
  Sender: FDA-Public Use
  Company Number: B0469533A

PATIENT
  Age: 61 Year
  Sex: Female

DRUGS (8)
  1. ZINACEF [Suspect]
     Dosage: 1.5G THREE TIMES PER DAY
     Route: 042
     Dates: start: 20070414, end: 20070421
  2. KEFEXIN [Suspect]
     Dosage: 500MG THREE TIMES PER DAY
     Route: 048
     Dates: start: 20070421, end: 20070423
  3. ZOVIRAX [Suspect]
     Dosage: 100MG THREE TIMES PER DAY
     Route: 042
     Dates: start: 20070419, end: 20070420
  4. PREDNISON [Concomitant]
     Route: 048
  5. ATARAX [Concomitant]
     Indication: PRURITUS
     Dosage: 25MG AS REQUIRED
     Route: 065
  6. TRIKOZOL [Concomitant]
     Indication: UTERINE INFECTION
     Route: 042
  7. KEFEXIN [Concomitant]
     Indication: UTERINE INFECTION
     Route: 042
  8. TRIKOZOL [Concomitant]
     Route: 048
     Dates: start: 20070421

REACTIONS (8)
  - ACUTE GENERALISED EXANTHEMATOUS PUSTULOSIS [None]
  - AURICULAR SWELLING [None]
  - BLISTER [None]
  - ERYTHEMA [None]
  - LOCAL SWELLING [None]
  - RASH [None]
  - RASH ERYTHEMATOUS [None]
  - URTICARIA [None]
